FAERS Safety Report 11141979 (Version 1)
Quarter: 2015Q2

REPORT INFORMATION
  Report Type: Spontaneous
  Country: US (occurrence: US)
  Receive Date: 20150527
  Receipt Date: 20150527
  Transmission Date: 20150821
  Serious: Yes (Hospitalization, Other)
  Sender: FDA-Public Use
  Company Number: US-GLAXOSMITHKLINE-US2015GSK071612

PATIENT
  Age: 64 Year
  Sex: Female

DRUGS (9)
  1. EVISTA [Concomitant]
     Active Substance: RALOXIFENE HYDROCHLORIDE
     Indication: PRODUCT USED FOR UNKNOWN INDICATION
     Dosage: UNK
     Route: 065
  2. TRILIPIX [Concomitant]
     Active Substance: FENOFIBRIC ACID
     Indication: PRODUCT USED FOR UNKNOWN INDICATION
     Dosage: UNK
     Route: 065
  3. ALLI [Suspect]
     Active Substance: ORLISTAT
     Indication: PRODUCT USED FOR UNKNOWN INDICATION
     Dosage: 1 DF, QD IN THE EVENING WITH DINNER.
     Route: 048
  4. OMEPRAZOLE. [Concomitant]
     Active Substance: OMEPRAZOLE
     Indication: PRODUCT USED FOR UNKNOWN INDICATION
     Dosage: UNK
     Route: 065
  5. LIPITOR [Suspect]
     Active Substance: ATORVASTATIN CALCIUM
     Indication: PRODUCT USED FOR UNKNOWN INDICATION
     Dosage: UNK
     Route: 065
  6. BONIVA [Concomitant]
     Active Substance: IBANDRONATE SODIUM
     Indication: PRODUCT USED FOR UNKNOWN INDICATION
     Dosage: UNK
     Route: 065
  7. SODIUM IBANDRONATE [Concomitant]
     Indication: PRODUCT USED FOR UNKNOWN INDICATION
     Dosage: UNK
  8. RALOXIFENE HYDROCHLORIDE. [Concomitant]
     Active Substance: RALOXIFENE HYDROCHLORIDE
     Indication: PRODUCT USED FOR UNKNOWN INDICATION
     Dosage: UNK
  9. FENOFIBRIC ACID. [Concomitant]
     Active Substance: FENOFIBRIC ACID
     Indication: PRODUCT USED FOR UNKNOWN INDICATION
     Dosage: UNK

REACTIONS (23)
  - Bladder neoplasm [Unknown]
  - Abdominal pain [Unknown]
  - Abdominal pain upper [Unknown]
  - Alanine aminotransferase [Unknown]
  - Rectal discharge [Unknown]
  - Hepatic enzyme increased [Unknown]
  - Treatment noncompliance [Unknown]
  - Ureteric cancer [Unknown]
  - Renal neoplasm [Unknown]
  - Constipation [Unknown]
  - Bladder cancer [Unknown]
  - Condition aggravated [Unknown]
  - Diverticulum [Unknown]
  - Transitional cell cancer of the renal pelvis and ureter [Unknown]
  - Haematuria [Unknown]
  - Renal cancer [Unknown]
  - Nephrectomy [Unknown]
  - Colectomy [Unknown]
  - Aspartate aminotransferase [Unknown]
  - Defaecation urgency [Unknown]
  - Diverticulitis [Unknown]
  - Ureterectomy [Unknown]
  - Pain [Unknown]
